FAERS Safety Report 9374779 (Version 2)
Quarter: 2013Q3

REPORT INFORMATION
  Report Type: Spontaneous
  Country: PT (occurrence: PT)
  Receive Date: 20130628
  Receipt Date: 20130730
  Transmission Date: 20140515
  Serious: Yes (Hospitalization, Other)
  Sender: FDA-Public Use
  Company Number: PT-JNJFOC-20130613441

PATIENT
  Age: 65 Year
  Sex: Female
  Weight: 43 kg

DRUGS (6)
  1. STELARA [Suspect]
     Indication: PSORIASIS
     Dosage: APPROXIMATE TOTAL NUMBER OF INJECTIONS PATIENT RECEIVED SIX
     Route: 058
     Dates: start: 20120210, end: 20130502
  2. PARACETAMOL/ CAFFEINE [Concomitant]
     Indication: PRODUCT USED FOR UNKNOWN INDICATION
     Dosage: 500 MG PARACETAMOL PLUS 30 MG CAFFEINE, 1 TABLET AT BREAKFAST AND 1 TABLET AT DINNER
     Route: 065
     Dates: start: 20130613
  3. SOCIAN [Concomitant]
     Indication: PRODUCT USED FOR UNKNOWN INDICATION
     Dosage: 50 MG/10 ML, 1 AMPOOULE WITH WATER AT BREAKFAST
     Route: 065
     Dates: start: 20130507
  4. BROMALEX [Concomitant]
     Indication: PRODUCT USED FOR UNKNOWN INDICATION
     Dosage: 1 PLUS 0 PLUS 1/DAY
     Route: 065
     Dates: start: 20130422
  5. DIPROSALIC [Concomitant]
     Indication: PRODUCT USED FOR UNKNOWN INDICATION
     Dosage: BETAMETHASONE PLUS SALICYLIC ACID, 0.5 MG/G PLUS  20 MG/G
     Route: 065
     Dates: start: 20130415
  6. LOCOID [Concomitant]
     Indication: PRODUCT USED FOR UNKNOWN INDICATION
     Route: 061

REACTIONS (3)
  - Adenocarcinoma pancreas [Unknown]
  - Cholangitis acute [Unknown]
  - Inflammatory bowel disease [Unknown]
